FAERS Safety Report 25886397 (Version 1)
Quarter: 2025Q4

REPORT INFORMATION
  Report Type: Spontaneous
  Country: IN (occurrence: IN)
  Receive Date: 20251006
  Receipt Date: 20251006
  Transmission Date: 20260117
  Serious: Yes (Hospitalization)
  Sender: BIOVITRUM
  Company Number: IN-BIOVITRUM-2025-IN-013627

PATIENT
  Age: 8 Month
  Sex: Female

DRUGS (1)
  1. NITISINONE [Suspect]
     Active Substance: NITISINONE
     Indication: Tyrosinaemia
     Dosage: 1 MG/KG/DAY

REACTIONS (3)
  - Treatment noncompliance [Unknown]
  - Liver disorder [Unknown]
  - Liver transplant [Unknown]
